FAERS Safety Report 5540635-6 (Version None)
Quarter: 2007Q4

REPORT INFORMATION
  Report Type: 
  Country: None (occurrence: None)
  Receive Date: 20071129
  Receipt Date: 20071003
  Transmission Date: 20080405
  Serious: Yes (Other)
  Sender: FDA-Public Use
  Company Number: US200707005754

PATIENT
  Age: 65 Year
  Sex: Female

DRUGS (6)
  1. OLANZAPINE [Suspect]
     Indication: MAJOR DEPRESSION
     Dosage: 10 MG, EACH EVENING, ORAL
     Route: 048
     Dates: start: 20070322, end: 20070801
  2. PROVIGIL [Concomitant]
  3. ZOLOFT [Concomitant]
  4. KLONOPIN [Concomitant]
  5. SEROQUEL [Concomitant]
  6. LORAZEPAM [Concomitant]

REACTIONS (2)
  - DYSPNOEA EXERTIONAL [None]
  - WEIGHT INCREASED [None]
